FAERS Safety Report 22114088 (Version 1)
Quarter: 2023Q1

REPORT INFORMATION
  Report Type: Spontaneous
  Country: AU (occurrence: None)
  Receive Date: 20230320
  Receipt Date: 20230320
  Transmission Date: 20230418
  Serious: Yes (Other)
  Sender: FDA-Public Use
  Company Number: 2023A062664

PATIENT
  Age: 40 Year
  Sex: Female

DRUGS (6)
  1. FULVESTRANT [Suspect]
     Active Substance: FULVESTRANT
  2. RIBOCICLIB [Suspect]
     Active Substance: RIBOCICLIB
  3. GOSERELIN ACETATE [Suspect]
     Active Substance: GOSERELIN ACETATE
  4. DENOSUMAB [Suspect]
     Active Substance: DENOSUMAB
  5. PACLITAXEL [Suspect]
     Active Substance: PACLITAXEL
  6. ZOLEDRONIC ACID [Suspect]
     Active Substance: ZOLEDRONIC ACID

REACTIONS (8)
  - Metastases to bone [Unknown]
  - Metastases to liver [Unknown]
  - Anaemia [Unknown]
  - Blood calcium increased [Unknown]
  - Neutropenia [Unknown]
  - Decreased appetite [Unknown]
  - Hepatic enzyme increased [Unknown]
  - Back pain [Unknown]
